FAERS Safety Report 5166373-X (Version None)
Quarter: 2006Q4

REPORT INFORMATION
  Report Type: 
  Country: None (occurrence: None)
  Receive Date: 20061129
  Receipt Date: 20061117
  Transmission Date: 20070319
  Serious: Yes (Other)
  Sender: FDA-Public Use
  Company Number: S06-USA-04889-01

PATIENT
  Age: 51 Year
  Sex: Female

DRUGS (6)
  1. LEXAPRO [Suspect]
     Indication: ANXIETY
     Dosage: 10 MG QD PO
     Route: 048
     Dates: start: 20050301
  2. LEXAPRO [Suspect]
     Indication: DEPRESSION
     Dosage: 10 MG QD PO
     Route: 048
     Dates: start: 20050301
  3. LIPITOR [Concomitant]
  4. THYROID MEDICATION (NOS) [Concomitant]
  5. LISINOPRIL [Concomitant]
  6. ESTROGENIC SUBSTANCE [Concomitant]

REACTIONS (5)
  - CUSHINGOID [None]
  - HEMIANOPIA HOMONYMOUS [None]
  - ISCHAEMIC STROKE [None]
  - OCULAR VASCULAR DISORDER [None]
  - OPTIC NERVE DISORDER [None]
